FAERS Safety Report 16309952 (Version 3)
Quarter: 2019Q2

REPORT INFORMATION
  Report Type: Report from Study
  Country: US (occurrence: US)
  Receive Date: 20190514
  Receipt Date: 20190620
  Transmission Date: 20190711
  Serious: No
  Sender: FDA-Public Use
  Company Number: PHEH2019US020235

PATIENT
  Age: 25 Year
  Sex: Female
  Weight: 26.74 kg

DRUGS (1)
  1. GILENYA [Suspect]
     Active Substance: FINGOLIMOD HYDROCHLORIDE
     Indication: MULTIPLE SCLEROSIS
     Dosage: 0.5 MG, QOD
     Route: 048
     Dates: start: 20190507

REACTIONS (3)
  - Ocular discomfort [Unknown]
  - Prescribed underdose [Unknown]
  - Eye pain [Unknown]

NARRATIVE: CASE EVENT DATE: 20190507
